FAERS Safety Report 6522130-0 (Version None)
Quarter: 2009Q4

REPORT INFORMATION
  Report Type: 
  Country: None (occurrence: None)
  Receive Date: 20091229
  Receipt Date: 20091229
  Transmission Date: 20100525
  Serious: Yes (Hospitalization)
  Sender: FDA-Public Use
  Company Number: None

PATIENT
  Age: 27 Year
  Sex: Female
  Weight: 56 kg

DRUGS (1)
  1. ESTELLE [Suspect]
     Indication: ORAL CONTRACEPTION
     Dosage: ONE QD PO

REACTIONS (1)
  - DEEP VEIN THROMBOSIS [None]
